FAERS Safety Report 24574193 (Version 1)
Quarter: 2024Q4

REPORT INFORMATION
  Report Type: Spontaneous
  Country: CN (occurrence: CN)
  Receive Date: 20241104
  Receipt Date: 20241104
  Transmission Date: 20250115
  Serious: Yes (Other)
  Sender: SANDOZ
  Company Number: CN-002147023-NVSC2024CN208523

PATIENT
  Age: 8 Year
  Sex: Male

DRUGS (3)
  1. BRINZOLAMIDE\TIMOLOL MALEATE [Suspect]
     Active Substance: BRINZOLAMIDE\TIMOLOL MALEATE
     Indication: Glaucoma
     Dosage: UNK
     Route: 065
  2. BRINZOLAMIDE\TIMOLOL MALEATE [Suspect]
     Active Substance: BRINZOLAMIDE\TIMOLOL MALEATE
     Indication: Cataract
  3. DEXAMETHASONE\TOBRAMYCIN [Suspect]
     Active Substance: DEXAMETHASONE\TOBRAMYCIN
     Indication: Eye pruritus
     Dosage: UNK
     Route: 065
     Dates: start: 2021, end: 2022

REACTIONS (6)
  - Condition aggravated [Unknown]
  - Vision blurred [Unknown]
  - Cataract [Unknown]
  - Glaucoma [Unknown]
  - Intraocular pressure increased [Unknown]
  - Product use issue [Unknown]
